FAERS Safety Report 5760828-2 (Version None)
Quarter: 2008Q2

REPORT INFORMATION
  Report Type: 
  Country: None (occurrence: None)
  Receive Date: 20080606
  Receipt Date: 20080522
  Transmission Date: 20081010
  Serious: Yes (Hospitalization)
  Sender: FDA-Public Use
  Company Number: FR-WYE-H04376708

PATIENT
  Age: 72 Year
  Sex: Male

DRUGS (6)
  1. PANTOPRAZOLE SODIUM [Interacting]
     Indication: HIATUS HERNIA
     Route: 048
     Dates: start: 20071209
  2. DIGOXIN [Concomitant]
     Dosage: UNKNOWN
     Route: 048
  3. CARVEDILOL [Concomitant]
     Dosage: UNKNOWN
     Route: 048
  4. CORTANCYL [Suspect]
     Dosage: UNKNOWN
     Route: 048
     Dates: start: 20071210
  5. PREVISCAN [Interacting]
     Indication: ATRIAL FIBRILLATION
     Route: 048
     Dates: end: 20071214
  6. PREVISCAN [Interacting]
     Route: 048
     Dates: start: 20071215

REACTIONS (2)
  - DRUG INTERACTION [None]
  - INTERNATIONAL NORMALISED RATIO INCREASED [None]
